FAERS Safety Report 18718305 (Version 2)
Quarter: 2021Q1

REPORT INFORMATION
  Report Type: Spontaneous
  Country: IN (occurrence: IN)
  Receive Date: 20210108
  Receipt Date: 20210205
  Transmission Date: 20210419
  Serious: Yes (Death, Disabling, Other)
  Sender: FDA-Public Use
  Company Number: IN-AMGEN-INDSP2021001953

PATIENT
  Age: 14 Year
  Sex: Male
  Weight: 33.8 kg

DRUGS (4)
  1. CHOLESTYRAMINE. [Concomitant]
     Active Substance: CHOLESTYRAMINE
     Indication: TYPE IIA HYPERLIPIDAEMIA
     Dosage: 2.5 GRAM, TID
  2. EVOLOCUMAB [Suspect]
     Active Substance: EVOLOCUMAB
     Indication: TYPE IIA HYPERLIPIDAEMIA
     Dosage: 420 MILLIGRAM, QMO
     Route: 058
     Dates: start: 20181022
  3. EZETIMIBE. [Concomitant]
     Active Substance: EZETIMIBE
     Indication: TYPE IIA HYPERLIPIDAEMIA
     Dosage: 10 MILLIGRAM, QOD
  4. ATORVASTATIN [Concomitant]
     Active Substance: ATORVASTATIN
     Indication: TYPE IIA HYPERLIPIDAEMIA
     Dosage: 40 MILLIGRAM, QOD

REACTIONS (4)
  - Post procedural complication [Unknown]
  - Therapy non-responder [Unknown]
  - Angina pectoris [Unknown]
  - Death [Fatal]

NARRATIVE: CASE EVENT DATE: 201903
